FAERS Safety Report 10680402 (Version 2)
Quarter: 2015Q4

REPORT INFORMATION
  Report Type: Spontaneous
  Country: US (occurrence: US)
  Receive Date: 20141229
  Receipt Date: 20151228
  Transmission Date: 20160304
  Serious: Yes (Hospitalization)
  Sender: FDA-Public Use
  Company Number: US-SA-2014SA001445

PATIENT
  Age: 84 Year
  Sex: Female
  Weight: 63.5 kg

DRUGS (29)
  1. NORVASC [Concomitant]
     Active Substance: AMLODIPINE BESYLATE
     Indication: BLOOD PRESSURE MEASUREMENT
     Route: 048
  2. PROTONIX [Concomitant]
     Active Substance: PANTOPRAZOLE SODIUM
     Dates: start: 20111006, end: 20111105
  3. THIAMINE HYDROCHLORIDE. [Concomitant]
     Active Substance: THIAMINE HYDROCHLORIDE
     Dates: start: 20111007
  4. SIMVASTATIN. [Concomitant]
     Active Substance: SIMVASTATIN
     Route: 048
  5. DECADRON [Concomitant]
     Active Substance: DEXAMETHASONE
     Dates: start: 20111005, end: 20111005
  6. DECADRON [Concomitant]
     Active Substance: DEXAMETHASONE
     Dates: start: 20111005, end: 20111005
  7. NORMODYNE [Concomitant]
     Active Substance: LABETALOL HYDROCHLORIDE
     Dates: start: 20111005, end: 20111005
  8. NICARDIPINE [Concomitant]
     Active Substance: NICARDIPINE
     Dates: start: 20111005, end: 20111005
  9. PLAVIX [Suspect]
     Active Substance: CLOPIDOGREL BISULFATE
     Indication: PERIPHERAL ARTERIAL OCCLUSIVE DISEASE
     Route: 065
     Dates: start: 20080222, end: 20111005
  10. ASPIRIN. [Suspect]
     Active Substance: ASPIRIN
     Route: 065
  11. SIMVASTATIN. [Concomitant]
     Active Substance: SIMVASTATIN
  12. TYLENOL [Concomitant]
     Active Substance: ACETAMINOPHEN
  13. ATIVAN [Concomitant]
     Active Substance: LORAZEPAM
     Dates: start: 20111005
  14. ATROPINE SULFATE. [Concomitant]
     Active Substance: ATROPINE SULFATE
     Dates: start: 20111005, end: 20111104
  15. FOLIC ACID. [Concomitant]
     Active Substance: FOLIC ACID
     Dates: start: 20111007
  16. CADUET [Concomitant]
     Active Substance: AMLODIPINE BESYLATE\ATORVASTATIN CALCIUM
     Dosage: 20 TABLETS
  17. COZAAR [Concomitant]
     Active Substance: LOSARTAN POTASSIUM
     Route: 048
  18. PEPCID [Concomitant]
     Active Substance: FAMOTIDINE
     Dates: start: 20111005, end: 20111005
  19. ESMOLOL HYDROCHLORIDE. [Concomitant]
     Active Substance: ESMOLOL HYDROCHLORIDE
     Dates: start: 20111005, end: 20111005
  20. TYLENOL [Concomitant]
     Active Substance: ACETAMINOPHEN
     Dates: start: 20111006
  21. MILK OF MAGNESIA [Concomitant]
     Active Substance: MAGNESIUM HYDROXIDE
     Dates: start: 20111006
  22. VITAMIN D/CALCIUM [Concomitant]
     Route: 048
  23. LABETALOL HYDROCHLORIDE. [Concomitant]
     Active Substance: LABETALOL HYDROCHLORIDE
     Dates: start: 20111005, end: 20111005
  24. SODIUM CHLORIDE. [Concomitant]
     Active Substance: SODIUM CHLORIDE
     Dates: start: 20111005
  25. DUONEB [Concomitant]
     Active Substance: ALBUTEROL SULFATE\IPRATROPIUM BROMIDE
     Dates: start: 20111005
  26. VASELINE PURE [Concomitant]
     Active Substance: PETROLATUM
     Dates: start: 20111006, end: 20111006
  27. PANTHENOL/RETINOL/THIAMINE HYDROCHLORIDE/ASCORBIC ACID/ERGOCALCIFEROL/FOLIC ACID/RIBOFLAVIN/NICOTINA [Concomitant]
     Route: 048
  28. BENADRYL [Concomitant]
     Active Substance: DIPHENHYDRAMINE HYDROCHLORIDE
     Dates: start: 20111005, end: 20111005
  29. LABETALOL HYDROCHLORIDE. [Concomitant]
     Active Substance: LABETALOL HYDROCHLORIDE
     Dates: start: 20111005, end: 20111005

REACTIONS (1)
  - Cerebral haemorrhage [Not Recovered/Not Resolved]

NARRATIVE: CASE EVENT DATE: 20111005
